FAERS Safety Report 7056496-2 (Version None)
Quarter: 2010Q4

REPORT INFORMATION
  Report Type: 
  Country: None (occurrence: None)
  Receive Date: 20101021
  Receipt Date: 20101012
  Transmission Date: 20110411
  Serious: Yes (Hospitalization)
  Sender: FDA-Public Use
  Company Number: JP-PFIZER INC-2010125428

PATIENT
  Age: 58 Year
  Sex: Female

DRUGS (7)
  1. SEIBULE [Suspect]
     Dosage: 150 MG, UNK
     Route: 048
     Dates: start: 20100827, end: 20100903
  2. NORVASC [Concomitant]
     Dosage: 2.5 MG, UNK
     Route: 048
  3. ENALAPRIL MALEATE [Concomitant]
     Dosage: 5 MG, UNK
     Route: 048
  4. BETAZOL [Concomitant]
     Dosage: 400 MG, UNK
     Route: 048
  5. GLYCORAN [Concomitant]
     Dosage: 500 MG, UNK
     Route: 048
  6. AMARYL [Concomitant]
     Dosage: 2 MG, UNK
     Route: 048
  7. LANTUS [Concomitant]
     Dosage: 8 U, UNK
     Route: 058

REACTIONS (4)
  - DEHYDRATION [None]
  - DIARRHOEA [None]
  - INFECTION [None]
  - URINE OUTPUT DECREASED [None]
